FAERS Safety Report 26022570 (Version 1)
Quarter: 2025Q4

REPORT INFORMATION
  Report Type: Spontaneous
  Country: CN (occurrence: CN)
  Receive Date: 20251110
  Receipt Date: 20251110
  Transmission Date: 20260117
  Serious: Yes (Death, Hospitalization, Other)
  Sender: DAITO PHARMACEUTICALS
  Company Number: CN-Daito Pharmaceutical Co., Ltd.-2188226

PATIENT
  Age: 50 Year
  Sex: Female

DRUGS (1)
  1. METHOTREXATE SODIUM [Suspect]
     Active Substance: METHOTREXATE SODIUM
     Indication: Rheumatoid arthritis

REACTIONS (8)
  - Epidermolysis bullosa [Fatal]
  - Hepatic failure [Fatal]
  - Toxicity to various agents [Fatal]
  - Mouth ulceration [Fatal]
  - Skin ulcer [Fatal]
  - Haemorrhage intracranial [Fatal]
  - Thrombocytopenia [Fatal]
  - Pancytopenia [Fatal]
